FAERS Safety Report 26079587 (Version 1)
Quarter: 2025Q4

REPORT INFORMATION
  Report Type: Spontaneous
  Country: US (occurrence: US)
  Receive Date: 20251123
  Receipt Date: 20251123
  Transmission Date: 20260118
  Serious: No
  Sender: RECKITT BENCKISER
  Company Number: US-PROD-AS2-212756134-20-25-USA-RB-0005612

PATIENT

DRUGS (1)
  1. DELSYM COUGH [Suspect]
     Active Substance: DEXTROMETHORPHAN HYDROBROMIDE
     Indication: Respiratory tract congestion
     Dosage: UNKNOWN
     Route: 048

REACTIONS (2)
  - Drug effective for unapproved indication [Unknown]
  - Product complaint [Unknown]
